FAERS Safety Report 6719695-2 (Version None)
Quarter: 2010Q2

REPORT INFORMATION
  Report Type: 
  Country: None (occurrence: None)
  Receive Date: 20100507
  Receipt Date: 20100426
  Transmission Date: 20101027
  Serious: No
  Sender: FDA-Public Use
  Company Number: 009416

PATIENT
  Age: 77 Year
  Sex: Female

DRUGS (2)
  1. PLETAL [Suspect]
     Dosage: ORAL
     Route: 048
  2. CIMETIDINE [Concomitant]

REACTIONS (6)
  - ABDOMINAL PAIN [None]
  - ANAEMIA [None]
  - HAEMATOMA [None]
  - NAUSEA [None]
  - PNEUMONIA ASPIRATION [None]
  - VOMITING [None]
